FAERS Safety Report 24329245 (Version 4)
Quarter: 2025Q1

REPORT INFORMATION
  Report Type: Other
  Country: US (occurrence: US)
  Receive Date: 20240917
  Receipt Date: 20250206
  Transmission Date: 20250409
  Serious: No
  Sender: TRAVERE THERAPEUTICS
  Company Number: US-TRAVERE-2024TVT00878

PATIENT
  Age: 57 Year
  Sex: Male

DRUGS (3)
  1. FILSPARI [Suspect]
     Active Substance: SPARSENTAN
     Indication: IgA nephropathy
     Route: 048
  2. FILSPARI [Suspect]
     Active Substance: SPARSENTAN
     Indication: Proteinuria
     Route: 048
     Dates: start: 20240809, end: 202411
  3. LISINOPRIL [Concomitant]
     Active Substance: LISINOPRIL

REACTIONS (10)
  - Fatigue [Unknown]
  - Chromaturia [Unknown]
  - Rash papular [Recovering/Resolving]
  - Rash [Recovering/Resolving]
  - Pruritus [None]
  - Dizziness [None]
  - Urine abnormality [Unknown]
  - Somnolence [None]
  - Headache [Unknown]
  - Insomnia [Unknown]

NARRATIVE: CASE EVENT DATE: 20240801
